FAERS Safety Report 24878455 (Version 1)
Quarter: 2025Q1

REPORT INFORMATION
  Report Type: Other
  Country: CN (occurrence: CN)
  Receive Date: 20250123
  Receipt Date: 20250123
  Transmission Date: 20250409
  Serious: Yes (Hospitalization, Other)
  Sender: CREEKWOOD PHARMACEUTICALS LLC
  Company Number: CN-Creekwood Pharmaceuticals LLC-2169639

PATIENT
  Age: 33 Year
  Sex: Female
  Weight: 40 kg

DRUGS (2)
  1. HYDROXYCHLOROQUINE SULFATE [Suspect]
     Active Substance: HYDROXYCHLOROQUINE SULFATE
     Indication: Systemic lupus erythematosus
  2. PREDNISOLONE ACETATE [Concomitant]
     Active Substance: PREDNISOLONE ACETATE

REACTIONS (4)
  - Cystoid macular oedema [Recovering/Resolving]
  - Overdose [Unknown]
  - Incorrect dose administered [Unknown]
  - Retinopathy [Recovering/Resolving]
